FAERS Safety Report 12576301 (Version 1)
Quarter: 2016Q3

REPORT INFORMATION
  Report Type: Spontaneous
  Country: CA (occurrence: CA)
  Receive Date: 20160720
  Receipt Date: 20160720
  Transmission Date: 20161109
  Serious: Yes (Hospitalization, Other)
  Sender: FDA-Public Use
  Company Number: CA-ACTAVIS-2016-15362

PATIENT
  Age: 59 Year
  Sex: Male

DRUGS (2)
  1. DEXAMETHASONE (UNKNOWN) [Suspect]
     Active Substance: DEXAMETHASONE
     Indication: GLIOBLASTOMA
     Dosage: 4 MG, DAILY
     Route: 065
  2. TEMOZOLOMIDE (UNKNOWN) [Suspect]
     Active Substance: TEMOZOLOMIDE
     Indication: GLIOBLASTOMA
     Dosage: UNK
     Route: 065

REACTIONS (3)
  - Lymphopenia [Unknown]
  - Herpes simplex encephalitis [Recovered/Resolved with Sequelae]
  - Meningoencephalitis bacterial [Recovered/Resolved with Sequelae]
